FAERS Safety Report 6215460-3 (Version None)
Quarter: 2009Q2

REPORT INFORMATION
  Report Type: 
  Country: None (occurrence: None)
  Receive Date: 20090604
  Receipt Date: 20090525
  Transmission Date: 20091009
  Serious: Yes (Disabling)
  Sender: FDA-Public Use
  Company Number: GB-BAUSCH-2009BL002531

PATIENT
  Age: 31 Year
  Sex: Female
  Weight: 100 kg

DRUGS (6)
  1. PREDNISOLONE [Suspect]
     Indication: DRUG USE FOR UNKNOWN INDICATION
     Route: 048
     Dates: start: 20090501
  2. AMOXICILLIN [Suspect]
     Indication: DRUG USE FOR UNKNOWN INDICATION
     Route: 048
     Dates: start: 20090501
  3. BECLOMETASONE [Concomitant]
     Route: 049
  4. MIGRALEVE [Concomitant]
  5. OMEPRAZOLE [Concomitant]
  6. ALBUTEROL [Concomitant]
     Route: 049

REACTIONS (2)
  - DEAFNESS [None]
  - TINNITUS [None]
